FAERS Safety Report 5356650-1 (Version None)
Quarter: 2007Q2

REPORT INFORMATION
  Report Type: 
  Country: None (occurrence: None)
  Receive Date: 20070530
  Receipt Date: 20061108
  Transmission Date: 20071010
  Serious: Yes (Hospitalization)
  Sender: FDA-Public Use
  Company Number: US200608005567

PATIENT
  Sex: Male
  Weight: 124.7 kg

DRUGS (2)
  1. ZYPREXA [Suspect]
     Indication: DEPRESSION
     Dosage: 5 MG, 2.5 MG
     Dates: start: 20060101
  2. ARIPIPRAZOLE [Concomitant]

REACTIONS (3)
  - DEEP VEIN THROMBOSIS [None]
  - DIABETES MELLITUS [None]
  - WEIGHT INCREASED [None]
